FAERS Safety Report 20669722 (Version 1)
Quarter: 2022Q2

REPORT INFORMATION
  Report Type: Spontaneous
  Country: US (occurrence: None)
  Receive Date: 20220401
  Receipt Date: 20220401
  Transmission Date: 20220720
  Serious: Yes (Other)
  Sender: FDA-Public Use
  Company Number: None

PATIENT
  Age: 80 Year
  Sex: Male
  Weight: 98 kg

DRUGS (2)
  1. AZACITIDINE [Suspect]
     Active Substance: AZACITIDINE
     Indication: Myelodysplastic syndrome
     Dates: start: 20220321, end: 20220321
  2. VIDAZA [Concomitant]
     Active Substance: AZACITIDINE
     Dates: start: 20220321, end: 20220321

REACTIONS (3)
  - Injection site necrosis [None]
  - Injection site pain [None]
  - Injection site bruising [None]

NARRATIVE: CASE EVENT DATE: 20220321
